FAERS Safety Report 10924361 (Version 2)
Quarter: 2015Q2

REPORT INFORMATION
  Report Type: Spontaneous
  Country: US (occurrence: US)
  Receive Date: 20150318
  Receipt Date: 20150524
  Transmission Date: 20150821
  Serious: No
  Sender: FDA-Public Use
  Company Number: US-JNJFOC-20130513872

PATIENT

DRUGS (2)
  1. ABT (INVESTIGATIONAL DRUG) [Suspect]
     Active Substance: INVESTIGATIONAL PRODUCT
     Indication: DRUG LEVEL
     Route: 048
  2. KETOCONAZOLE. [Suspect]
     Active Substance: KETOCONAZOLE
     Indication: DRUG LEVEL
     Dosage: FOR 10 DAYS
     Route: 048

REACTIONS (4)
  - Adverse event [Unknown]
  - Feeling jittery [Unknown]
  - Dizziness [Unknown]
  - Headache [Unknown]
